FAERS Safety Report 7043144-0 (Version None)
Quarter: 2010Q4

REPORT INFORMATION
  Report Type: 
  Country: None (occurrence: None)
  Receive Date: 20101013
  Receipt Date: 20100216
  Transmission Date: 20110411
  Serious: No
  Sender: FDA-Public Use
  Company Number: US-ASTRAZENECA-2010SE00688

PATIENT
  Age: 84 Year
  Sex: Male
  Weight: 59 kg

DRUGS (7)
  1. SYMBICORT [Suspect]
     Dosage: 160 UG, ONE PUFF
     Route: 055
     Dates: start: 20090101
  2. SYMBICORT [Suspect]
     Dosage: 160 UG, ONE PUFF
     Route: 055
     Dates: start: 20090101
  3. ZOVIRAX [Concomitant]
  4. PROTONIX [Concomitant]
  5. MUCINEX [Concomitant]
  6. ALEVE (CAPLET) [Concomitant]
  7. IBUPROFEN [Concomitant]

REACTIONS (2)
  - DRUG EFFECT DECREASED [None]
  - FEELING ABNORMAL [None]
